FAERS Safety Report 8062056-7 (Version None)
Quarter: 2012Q1

REPORT INFORMATION
  Report Type: 
  Country: None (occurrence: None)
  Receive Date: 20120123
  Receipt Date: 20120111
  Transmission Date: 20120608
  Serious: Yes (Other)
  Sender: FDA-Public Use
  Company Number: US-BAYER-201036088NA

PATIENT
  Sex: Female
  Weight: 59 kg

DRUGS (2)
  1. DROSPIRENONE AND ETHINYL ESTRADIOL [Suspect]
     Indication: PREMENSTRUAL SYNDROME
     Dosage: UNK
     Route: 048
     Dates: start: 20070501, end: 20090501
  2. YASMIN [Suspect]
     Indication: PREMENSTRUAL SYNDROME
     Dosage: UNK
     Dates: start: 20070501, end: 20090501

REACTIONS (8)
  - DEEP VEIN THROMBOSIS [None]
  - PANIC ATTACK [None]
  - TREMOR [None]
  - DYSPNOEA [None]
  - OEDEMA PERIPHERAL [None]
  - CEREBROVASCULAR ACCIDENT [None]
  - ANXIETY [None]
  - DEPRESSION [None]
